FAERS Safety Report 20418489 (Version 1)
Quarter: 2022Q1

REPORT INFORMATION
  Report Type: Spontaneous
  Country: DE (occurrence: DE)
  Receive Date: 20220202
  Receipt Date: 20220202
  Transmission Date: 20220423
  Serious: Yes (Other)
  Sender: FDA-Public Use
  Company Number: DE-GILEAD-2022-0567861

PATIENT
  Age: 44 Year
  Sex: Female

DRUGS (11)
  1. DESCOVY [Suspect]
     Active Substance: EMTRICITABINE\TENOFOVIR ALAFENAMIDE FUMARATE
     Indication: HIV infection
     Dosage: UNK
     Route: 065
     Dates: start: 201605
  2. TRUVADA [Suspect]
     Active Substance: EMTRICITABINE\TENOFOVIR DISOPROXIL FUMARATE
     Indication: HIV infection
     Dosage: 700/100 MG BID
     Route: 065
     Dates: start: 2004
  3. HARVONI [Suspect]
     Active Substance: LEDIPASVIR\SOFOSBUVIR
     Indication: Hepatitis C
     Dosage: UNK
     Route: 065
     Dates: start: 201403
  4. FOSAMPRENAVIR [Suspect]
     Active Substance: FOSAMPRENAVIR
     Indication: HIV infection
     Dosage: UNK
     Route: 065
     Dates: start: 2004
  5. ELBASVIR\GRAZOPREVIR [Suspect]
     Active Substance: ELBASVIR\GRAZOPREVIR
     Indication: Hepatitis C
     Dosage: UNK
     Route: 065
     Dates: start: 201702
  6. SIMEPREVIR [Suspect]
     Active Substance: SIMEPREVIR
     Indication: Hepatitis C
     Dosage: UNK
     Route: 065
  7. OMBITASVIR [Suspect]
     Active Substance: OMBITASVIR
     Indication: Hepatitis C
     Dosage: UNK
     Route: 065
  8. DACLATASVIR [Suspect]
     Active Substance: DACLATASVIR
     Indication: Product used for unknown indication
     Dosage: 30 MG
     Route: 065
     Dates: start: 201403
  9. RIBAVIRIN [Suspect]
     Active Substance: RIBAVIRIN
     Indication: Hepatitis C
     Dosage: UNK
     Route: 065
  10. INTERFERON [Suspect]
     Active Substance: INTERFERON
     Indication: Hepatitis C
     Dosage: UNK
     Route: 065
  11. DOLUTEGRAVIR [Suspect]
     Active Substance: DOLUTEGRAVIR
     Indication: HIV infection
     Dosage: UNK
     Route: 065
     Dates: start: 201501

REACTIONS (5)
  - Osteoporosis [Unknown]
  - Foot fracture [Unknown]
  - Hand fracture [Unknown]
  - Foot fracture [Unknown]
  - Hand fracture [Unknown]

NARRATIVE: CASE EVENT DATE: 20190801
